FAERS Safety Report 7557358-4 (Version None)
Quarter: 2011Q2

REPORT INFORMATION
  Report Type: 
  Country: None (occurrence: None)
  Receive Date: 20110620
  Receipt Date: 20110606
  Transmission Date: 20111010
  Serious: Yes (Other)
  Sender: FDA-Public Use
  Company Number: PHHY2011BR50239

PATIENT
  Sex: Male

DRUGS (3)
  1. RASILEZ [Suspect]
  2. CLONAZEPAM [Concomitant]
  3. LEXAPRO [Concomitant]

REACTIONS (2)
  - PANCREATITIS ACUTE [None]
  - WHITE BLOOD CELL DISORDER [None]
